FAERS Safety Report 9464757 (Version 3)
Quarter: 2013Q3

REPORT INFORMATION
  Report Type: Spontaneous
  Country: NO (occurrence: NO)
  Receive Date: 20130819
  Receipt Date: 20130909
  Transmission Date: 20140515
  Serious: Yes (Hospitalization, Congenital Anomaly)
  Sender: FDA-Public Use
  Company Number: NO-GLAXOSMITHKLINE-B0677954A

PATIENT
  Age: 0 None
  Sex: Female

DRUGS (5)
  1. LAMICTAL [Suspect]
     Indication: EPILEPSY
     Route: 064
  2. TRILAFON [Suspect]
     Indication: BORDERLINE PERSONALITY DISORDER
     Route: 064
  3. DISIPAL [Suspect]
     Indication: MENTAL DISORDER
     Route: 064
  4. ORFIRIL [Suspect]
     Indication: EPILEPSY
     Route: 064
  5. VITAMIN K [Concomitant]

REACTIONS (10)
  - Epilepsy [Unknown]
  - Sensorimotor disorder [Unknown]
  - Attention deficit/hyperactivity disorder [Not Recovered/Not Resolved]
  - Withdrawal syndrome [Recovered/Resolved]
  - Cognitive disorder [Unknown]
  - Mental retardation [Unknown]
  - Foetal exposure during pregnancy [Unknown]
  - Vitamin K deficiency [Unknown]
  - Exposure during breast feeding [Unknown]
  - Dyskinesia [Unknown]
